FAERS Safety Report 17198226 (Version 1)
Quarter: 2019Q4

REPORT INFORMATION
  Report Type: Spontaneous
  Country: FR (occurrence: FR)
  Receive Date: 20191225
  Receipt Date: 20191225
  Transmission Date: 20200122
  Serious: Yes (Other)
  Sender: FDA-Public Use
  Company Number: FR-AUROBINDO-AUR-APL-2019-106971

PATIENT
  Age: 25 Year
  Sex: Female
  Weight: 52 kg

DRUGS (1)
  1. FLUCONAZOLE. [Suspect]
     Active Substance: FLUCONAZOLE
     Indication: ORAL FUNGAL INFECTION
     Dosage: 100 MILLIGRAM, ONCE A DAY (100 MG, TWICE DAILY (TOTAL DOSE 2 G WITHIN 15 DAYS))
     Route: 048
     Dates: start: 20190829

REACTIONS (2)
  - Metrorrhagia [Unknown]
  - Abortion spontaneous [Unknown]

NARRATIVE: CASE EVENT DATE: 20190925
